FAERS Safety Report 13168238 (Version 3)
Quarter: 2017Q2

REPORT INFORMATION
  Report Type: Spontaneous
  Country: US (occurrence: US)
  Receive Date: 20170131
  Receipt Date: 20170425
  Transmission Date: 20170830
  Serious: Yes (Death)
  Sender: FDA-Public Use
  Company Number: US-PFIZER INC-2016585170

PATIENT
  Age: 76 Year
  Sex: Male

DRUGS (5)
  1. SUTENT [Suspect]
     Active Substance: SUNITINIB MALATE
     Indication: CLEAR CELL RENAL CELL CARCINOMA
     Dosage: 50 MG, CYCLIC (DAILY 1 DAILY 14 DAYS ON 7 DAYS OFF)
     Route: 048
  2. SUTENT [Suspect]
     Active Substance: SUNITINIB MALATE
     Dosage: 50 MG, 1 CAP (50MG) BY MOUTH 1 DAILY
     Route: 048
     Dates: start: 20170103, end: 20170114
  3. PROVENTIL HFA [Concomitant]
     Active Substance: ALBUTEROL SULFATE
     Dosage: UNK
  4. SYMBICORT [Concomitant]
     Active Substance: BUDESONIDE\FORMOTEROL FUMARATE DIHYDRATE
     Dosage: UNK
  5. SPIRIVA [Concomitant]
     Active Substance: TIOTROPIUM BROMIDE MONOHYDRATE
     Dosage: UNK

REACTIONS (18)
  - Peripheral swelling [Unknown]
  - Hypoaesthesia [Unknown]
  - Diarrhoea [Unknown]
  - Skin discolouration [Unknown]
  - Weight decreased [Unknown]
  - Blood disorder [Unknown]
  - Pain [Unknown]
  - Asthenia [Unknown]
  - Dyspepsia [Unknown]
  - Ageusia [Unknown]
  - Dyspnoea [Unknown]
  - Feeling cold [Unknown]
  - Nausea [Unknown]
  - Decreased appetite [Unknown]
  - Paraesthesia [Unknown]
  - Death [Fatal]
  - Vomiting [Unknown]
  - Pain in extremity [Unknown]

NARRATIVE: CASE EVENT DATE: 20170105
